FAERS Safety Report 7345652-1 (Version None)
Quarter: 2011Q1

REPORT INFORMATION
  Report Type: 
  Country: None (occurrence: None)
  Receive Date: 20110310
  Receipt Date: 20110301
  Transmission Date: 20110831
  Serious: Yes (Hospitalization, Other)
  Sender: FDA-Public Use
  Company Number: B0686403A

PATIENT
  Sex: Male

DRUGS (6)
  1. IPD [Suspect]
     Indication: ASTHMA
     Dosage: 100MG PER DAY
     Route: 048
     Dates: start: 20090301, end: 20100801
  2. FLUTIDE [Suspect]
     Indication: ASTHMA
     Dosage: 400MCG PER DAY
     Route: 055
     Dates: start: 20090107, end: 20090518
  3. GASTER [Suspect]
     Indication: ASTHMA
     Dosage: 17MG PER DAY
     Route: 048
     Dates: start: 20090101, end: 20100501
  4. ERYTHROMYCIN [Suspect]
     Indication: ASTHMA
     Dosage: 200MG PER DAY
     Route: 048
     Dates: start: 20090301
  5. SALMETEROL FLUTICASONE [Suspect]
     Indication: ASTHMA
     Dosage: 100MG PER DAY
     Route: 055
     Dates: start: 20090408, end: 20090518
  6. ONON [Suspect]
     Indication: ASTHMA
     Dosage: 360MG PER DAY
     Route: 048
     Dates: start: 20081201

REACTIONS (1)
  - ADRENAL INSUFFICIENCY [None]
